FAERS Safety Report 12580997 (Version 1)
Quarter: 2016Q3

REPORT INFORMATION
  Report Type: Spontaneous
  Country: AU (occurrence: AU)
  Receive Date: 20160721
  Receipt Date: 20160721
  Transmission Date: 20161109
  Serious: Yes (Hospitalization)
  Sender: FDA-Public Use
  Company Number: AU-PFIZER INC-2016349101

PATIENT

DRUGS (1)
  1. LYRICA [Suspect]
     Active Substance: PREGABALIN
     Dosage: 900 MG, UNK

REACTIONS (4)
  - Palpitations [Unknown]
  - Intentional underdose [Unknown]
  - Drug withdrawal syndrome [Unknown]
  - Prescribed overdose [Unknown]
